FAERS Safety Report 7294894-2 (Version None)
Quarter: 2011Q1

REPORT INFORMATION
  Report Type: 
  Country: None (occurrence: None)
  Receive Date: 20110216
  Receipt Date: 20110203
  Transmission Date: 20110831
  Serious: Yes (Hospitalization, Other)
  Sender: FDA-Public Use
  Company Number: US-BAYER-200837062NA

PATIENT
  Sex: Male

DRUGS (10)
  1. INTERFERON BETA-1B [Suspect]
     Dosage: UNK
     Route: 058
     Dates: start: 20071027, end: 20071211
  2. INTERFERON BETA-1B [Suspect]
     Indication: RELAPSING-REMITTING MULTIPLE SCLEROSIS
     Dosage: UNK
     Route: 058
     Dates: start: 20060314, end: 20060323
  3. GLUCOPHAGE [Concomitant]
     Indication: DIABETES MELLITUS
  4. INTERFERON BETA-1B [Suspect]
     Dosage: 8 MIU, QOD, BETAJECT
     Route: 058
  5. INTERFERON BETA-1B [Suspect]
     Dosage: 8 MIU, QOD
     Route: 058
  6. INTERFERON BETA-1B [Suspect]
     Dosage: 8 MIU, QOD, BETAJECT
     Route: 058
     Dates: end: 20100318
  7. CIPRO [Concomitant]
  8. INTERFERON BETA-1B [Suspect]
     Dosage: UNK
     Route: 058
     Dates: start: 20060327, end: 20070927
  9. INTERFERON BETA-1B [Suspect]
     Dosage: 8 MIU, QOD
     Route: 058
     Dates: start: 20080309
  10. ACETAMINOPHEN [Concomitant]
     Indication: PREMEDICATION

REACTIONS (8)
  - MULTIPLE SCLEROSIS [None]
  - URINARY TRACT INFECTION [None]
  - INJECTION SITE ERYTHEMA [None]
  - INJECTION SITE PAIN [None]
  - INJECTION SITE VESICLES [None]
  - PROSTATE CANCER [None]
  - ASTHENIA [None]
  - MOBILITY DECREASED [None]
